FAERS Safety Report 16266500 (Version 1)
Quarter: 2019Q2

REPORT INFORMATION
  Report Type: Report from Study
  Country: ZA (occurrence: ZA)
  Receive Date: 20190502
  Receipt Date: 20190502
  Transmission Date: 20190711
  Serious: Yes (Other)
  Sender: FDA-Public Use
  Company Number: ZA-SA-2018SA290453

PATIENT
  Age: 36 Year
  Sex: Female

DRUGS (9)
  1. DIAGLUCIDE [Concomitant]
     Active Substance: GLICLAZIDE
     Dosage: 60 MG, QD, BB (BEFORE BREAKFAST)
     Dates: start: 20180921
  2. GLUCOPHAGE [Concomitant]
     Active Substance: METFORMIN HYDROCHLORIDE
     Dosage: 1000 MG, BID (AFTER SUPPER AND AFTER BREAKFAST)
     Dates: start: 20180921
  3. OPTISULIN (INSULIN GLARGINE) [Suspect]
     Active Substance: INSULIN GLARGINE
     Dosage: 50 U, QD (BT)
     Dates: start: 20180918
  4. OPTISULIN (INSULIN GLARGINE) [Suspect]
     Active Substance: INSULIN GLARGINE
     Dosage: 56 U, HS
     Dates: start: 20190111
  5. YELATE [Concomitant]
     Active Substance: DULOXETINE HYDROCHLORIDE
     Dosage: 60 MG, QD
     Dates: start: 20160113
  6. AURO LOSARTAN [Concomitant]
     Dosage: 50 MG, QD
     Dates: start: 20181024
  7. TOUJEO [Suspect]
     Active Substance: INSULIN GLARGINE
     Dosage: UNK UNK, UNK
  8. NO STUDY DRUG GIVEN [Suspect]
     Active Substance: UNSPECIFIED INGREDIENT
     Dosage: UNK
  9. VIMOVO [Concomitant]
     Active Substance: ESOMEPRAZOLE MAGNESIUM\NAPROXEN
     Dosage: 500 MG, BID
     Dates: start: 20181101

REACTIONS (19)
  - Nausea [Not Recovered/Not Resolved]
  - Pyrexia [Not Recovered/Not Resolved]
  - Headache [Recovered/Resolved]
  - Abdominal discomfort [Recovered/Resolved]
  - Abdominal distension [Not Recovered/Not Resolved]
  - Dizziness [Not Recovered/Not Resolved]
  - Pollakiuria [Not Recovered/Not Resolved]
  - Unevaluable event [Recovered/Resolved]
  - Bronchitis [Recovered/Resolved]
  - Infection [Recovered/Resolved]
  - Kidney infection [Not Recovered/Not Resolved]
  - Back pain [Not Recovered/Not Resolved]
  - Urinary tract infection [Not Recovered/Not Resolved]
  - Glycosylated haemoglobin increased [Unknown]
  - Blood glucose increased [Not Recovered/Not Resolved]
  - Tremor [Recovered/Resolved]
  - Hyperhidrosis [Recovered/Resolved]
  - Hangover [Recovered/Resolved]
  - Increased appetite [Recovered/Resolved]

NARRATIVE: CASE EVENT DATE: 20181014
